FAERS Safety Report 9557173 (Version 4)
Quarter: 2019Q2

REPORT INFORMATION
  Report Type: Spontaneous
  Country: US (occurrence: US)
  Receive Date: 20130926
  Receipt Date: 20190403
  Transmission Date: 20190711
  Serious: Yes (Hospitalization, Disabling, Other)
  Sender: FDA-Public Use
  Company Number: US-009507513-1309USA012797

PATIENT
  Sex: Female
  Weight: 85.71 kg

DRUGS (1)
  1. JANUVIA [Suspect]
     Active Substance: SITAGLIPTIN PHOSPHATE
     Dosage: 50 MG, QD
     Route: 048
     Dates: start: 20090330, end: 201206

REACTIONS (11)
  - Hypertension [Unknown]
  - Urinary tract infection [Unknown]
  - Ovarian cyst [Unknown]
  - Kidney fibrosis [Unknown]
  - Abnormal loss of weight [Recovered/Resolved]
  - Solid pseudopapillary tumour of the pancreas [Unknown]
  - Hyperlipidaemia [Unknown]
  - Obesity [Unknown]
  - Hepatic cyst [Unknown]
  - Haemangioma of liver [Unknown]
  - Uterine leiomyoma [Unknown]

NARRATIVE: CASE EVENT DATE: 20110925
